FAERS Safety Report 25445575 (Version 1)
Quarter: 2025Q2

REPORT INFORMATION
  Report Type: Spontaneous
  Country: CN (occurrence: CN)
  Receive Date: 20250617
  Receipt Date: 20250617
  Transmission Date: 20250717
  Serious: Yes (Hospitalization)
  Sender: PFIZER
  Company Number: CN-PFIZER INC-PV202500070935

PATIENT
  Age: 30 Year
  Sex: Male
  Weight: 60 kg

DRUGS (3)
  1. CYTARABINE [Suspect]
     Active Substance: CYTARABINE
     Indication: Acute myeloid leukaemia
     Dosage: 100 MG, 1X/DAY
     Route: 041
     Dates: start: 20250602, end: 20250602
  2. HYDROXYUREA [Suspect]
     Active Substance: HYDROXYUREA
     Indication: Acute myeloid leukaemia
     Dosage: 2 G, 3X/DAY
     Route: 048
     Dates: start: 20250529, end: 20250601
  3. IDARUBICIN HYDROCHLORIDE [Concomitant]
     Active Substance: IDARUBICIN HYDROCHLORIDE
     Indication: Acute myeloid leukaemia
     Dosage: 20 MG, 1X/DAY
     Route: 041
     Dates: start: 20250602, end: 20250603

REACTIONS (4)
  - Suspected drug-induced liver injury [Recovering/Resolving]
  - Hepatic enzyme increased [Recovering/Resolving]
  - Blood bilirubin increased [Recovering/Resolving]
  - Bilirubin conjugated increased [Recovering/Resolving]

NARRATIVE: CASE EVENT DATE: 20250603
